FAERS Safety Report 7434995-9 (Version None)
Quarter: 2011Q2

REPORT INFORMATION
  Report Type: 
  Country: None (occurrence: None)
  Receive Date: 20110415
  Receipt Date: 20110331
  Transmission Date: 20111010
  Serious: Yes (Hospitalization)
  Sender: FDA-Public Use
  Company Number: WAES 1104USA00331

PATIENT
  Age: 79 Year
  Sex: Male

DRUGS (21)
  1. BENDROFLUAZIDE TABLETS [Concomitant]
  2. GRANISETRON HCL [Concomitant]
  3. VELCADE [Suspect]
     Indication: MULTIPLE MYELOMA
     Dosage: 2.6 MG, IV
     Route: 042
     Dates: start: 20090227
  4. VELCADE [Suspect]
     Indication: MULTIPLE MYELOMA
     Dosage: 2.6 MG, IV
     Route: 042
     Dates: start: 20090127
  5. ACETAMINOPHEN [Concomitant]
  6. PERSANTIN [Concomitant]
  7. RAMIPRIL [Concomitant]
  8. TRAMADOL HCL [Concomitant]
  9. CODEINE PHOSPHATE [Concomitant]
  10. OMEPRAZOLE [Concomitant]
  11. DECADRON [Suspect]
     Indication: MULTIPLE MYELOMA
     Dosage: 20 MG, PO
     Route: 048
     Dates: start: 20090227
  12. DECADRON [Suspect]
     Indication: MULTIPLE MYELOMA
     Dosage: 20 MG, PO
     Route: 048
     Dates: start: 20090127
  13. MOVIPREP [Concomitant]
  14. ASPIRIN [Concomitant]
  15. BECLOMETHASONE DIPROPIONATE [Concomitant]
  16. LACTULOSE [Concomitant]
  17. DOMPERIDONE [Concomitant]
  18. ISOSORBIDE MONONITRATE [Concomitant]
  19. SIMVASTATIN [Concomitant]
  20. PREDNISOLONE [Concomitant]
  21. SENNA [Concomitant]

REACTIONS (14)
  - ABDOMINAL DISCOMFORT [None]
  - NAUSEA [None]
  - CONSTIPATION [None]
  - ORTHOSTATIC HYPOTENSION [None]
  - DYSPNOEA [None]
  - HYPOXIA [None]
  - TOXICITY TO VARIOUS AGENTS [None]
  - LOWER RESPIRATORY TRACT INFECTION [None]
  - DEHYDRATION [None]
  - HYPONATRAEMIA [None]
  - UNEVALUABLE EVENT [None]
  - ABDOMINAL DISTENSION [None]
  - DIARRHOEA [None]
  - VOMITING [None]
